FAERS Safety Report 5211702-1 (Version None)
Quarter: 2007Q1

REPORT INFORMATION
  Report Type: 
  Country: None (occurrence: None)
  Receive Date: 20070118
  Receipt Date: 20070109
  Transmission Date: 20070707
  Serious: Yes (Hospitalization, Disabling)
  Sender: FDA-Public Use
  Company Number: US-BRISTOL-MYERS SQUIBB COMPANY-13641972

PATIENT
  Age: 46 Year
  Sex: Male
  Weight: 92 kg

DRUGS (6)
  1. TEQUIN [Suspect]
     Dates: start: 20020109, end: 20020130
  2. GLUCOPHAGE [Concomitant]
     Indication: DIABETES MELLITUS NON-INSULIN-DEPENDENT
     Route: 048
     Dates: start: 20010925
  3. INSULIN [Concomitant]
  4. NORFLEX [Concomitant]
     Route: 048
     Dates: start: 20010524
  5. IBUPROFEN [Concomitant]
     Route: 048
     Dates: start: 20010524
  6. GLIPIZIDE [Concomitant]

REACTIONS (7)
  - ANAEMIA [None]
  - CARDIAC FAILURE [None]
  - GANGRENE [None]
  - HEPATIC FAILURE [None]
  - HYPERGLYCAEMIA [None]
  - RENAL FAILURE [None]
  - RESPIRATORY FAILURE [None]
